FAERS Safety Report 23367509 (Version 1)
Quarter: 2024Q1

REPORT INFORMATION
  Report Type: Spontaneous
  Country: US (occurrence: US)
  Receive Date: 20240104
  Receipt Date: 20240104
  Transmission Date: 20240410
  Serious: No
  Sender: FDA-Public Use
  Company Number: US-009507513-2312USA003453

PATIENT
  Sex: Female

DRUGS (1)
  1. KEYTRUDA [Suspect]
     Active Substance: PEMBROLIZUMAB
     Indication: Bladder cancer
     Dosage: UNK
     Route: 042
     Dates: end: 20230922

REACTIONS (7)
  - Rash pruritic [Not Recovered/Not Resolved]
  - Asthenia [Not Recovered/Not Resolved]
  - Scab [Not Recovered/Not Resolved]
  - Feeling abnormal [Not Recovered/Not Resolved]
  - Tearfulness [Not Recovered/Not Resolved]
  - Anger [Not Recovered/Not Resolved]
  - Skin haemorrhage [Not Recovered/Not Resolved]
